FAERS Safety Report 7943128-1 (Version None)
Quarter: 2011Q4

REPORT INFORMATION
  Report Type: 
  Country: None (occurrence: None)
  Receive Date: 20111128
  Receipt Date: 20111116
  Transmission Date: 20120403
  Serious: Yes (Hospitalization)
  Sender: FDA-Public Use
  Company Number: PHHY2011DE101481

PATIENT
  Age: 11 Year
  Sex: Male

DRUGS (2)
  1. RITALIN LA [Suspect]
     Dosage: 20 MG, DAILY
     Route: 048
     Dates: start: 20111001, end: 20111001
  2. RITALIN LA [Suspect]
     Indication: ATTENTION DEFICIT/HYPERACTIVITY DISORDER
     Dosage: 30 MG, UNK
     Route: 048
     Dates: start: 20111001, end: 20111001

REACTIONS (3)
  - MENTAL DISORDER [None]
  - ANXIETY [None]
  - DELUSION [None]
